FAERS Safety Report 21026029 (Version 5)
Quarter: 2022Q3

REPORT INFORMATION
  Report Type: Spontaneous
  Country: US (occurrence: US)
  Receive Date: 20220630
  Receipt Date: 20220922
  Transmission Date: 20221027
  Serious: No
  Sender: FDA-Public Use
  Company Number: US-PFIZER INC-2018241890

PATIENT
  Age: 16 Year
  Sex: Male
  Weight: 31.75 kg

DRUGS (3)
  1. GENOTROPIN [Suspect]
     Active Substance: SOMATROPIN
     Indication: Short stature
     Dosage: 1.0 MG, DAILY
     Dates: start: 20150824
  2. GENOTROPIN [Suspect]
     Active Substance: SOMATROPIN
     Dosage: 2.2 MG 6 NIGHTS PER WEEK
     Route: 058
     Dates: start: 2016
  3. GENOTROPIN [Suspect]
     Active Substance: SOMATROPIN
     Dosage: 3.4MG 6 DAYS A WEEK

REACTIONS (2)
  - Device information output issue [Unknown]
  - Device mechanical issue [Unknown]
